FAERS Safety Report 4869902-6 (Version None)
Quarter: 2005Q4

REPORT INFORMATION
  Report Type: 
  Country: None (occurrence: None)
  Receive Date: 20051230
  Receipt Date: 20010914
  Transmission Date: 20060501
  Serious: Yes (Hospitalization)
  Sender: FDA-Public Use
  Company Number: FR-MERCK-01096051

PATIENT
  Age: 86 Year
  Sex: Female

DRUGS (5)
  1. VIOXX [Suspect]
     Indication: OSTEOARTHRITIS
     Route: 048
     Dates: start: 20010701, end: 20010804
  2. BROMAZEPAM [Concomitant]
     Route: 048
  3. POLYETHYLENE GLYCOL 4000 [Concomitant]
     Route: 048
  4. FLUOXETINE HYDROCHLORIDE [Concomitant]
     Route: 048
  5. SPIRONOLACTONE [Concomitant]
     Route: 048

REACTIONS (2)
  - PANCREATITIS ACUTE [None]
  - PLEURAL EFFUSION [None]
